FAERS Safety Report 11829186 (Version 2)
Quarter: 2015Q4

REPORT INFORMATION
  Report Type: Spontaneous
  Country: GR (occurrence: GR)
  Receive Date: 20151211
  Receipt Date: 20151217
  Transmission Date: 20160305
  Serious: Yes (Other)
  Sender: FDA-Public Use
  Company Number: GR-PFIZER INC-2015437794

PATIENT
  Age: 93 Year
  Sex: Female

DRUGS (1)
  1. XANAX [Suspect]
     Active Substance: ALPRAZOLAM
     Indication: INSOMNIA
     Dosage: 0.5 MG, AS NEEDED
     Dates: start: 201508

REACTIONS (8)
  - Dry mouth [Unknown]
  - Cerebrovascular accident [Unknown]
  - Eye disorder [Unknown]
  - Phobia [Unknown]
  - Eye swelling [Unknown]
  - Confusional state [Unknown]
  - Rash [Unknown]
  - Panic disorder [Unknown]

NARRATIVE: CASE EVENT DATE: 2015
